FAERS Safety Report 8241726-1 (Version None)
Quarter: 2012Q1

REPORT INFORMATION
  Report Type: 
  Country: None (occurrence: None)
  Receive Date: 20120328
  Receipt Date: 20120322
  Transmission Date: 20120608
  Serious: Yes (Other)
  Sender: FDA-Public Use
  Company Number: US-PFIZER INC-2012075780

PATIENT
  Sex: Female
  Weight: 58.957 kg

DRUGS (7)
  1. DILANTIN-125 [Suspect]
     Indication: EPILEPSY
     Dosage: UNK, 2X/DAY
     Dates: end: 20020101
  2. LAMICTAL [Suspect]
     Indication: EPILEPSY
     Dosage: UNK
  3. INSULIN [Concomitant]
     Indication: DIABETES MELLITUS
     Dosage: UNK
  4. CLONAZEPAM [Concomitant]
     Indication: ANXIETY
     Dosage: UNK
  5. TOPAMAX [Suspect]
     Indication: EPILEPSY
     Dosage: UNK
  6. SYNTHROID [Concomitant]
     Indication: THYROID DISORDER
     Dosage: UNK
  7. PRAVASTATIN [Concomitant]
     Indication: BLOOD CHOLESTEROL ABNORMAL
     Dosage: UNK

REACTIONS (1)
  - CONVULSION [None]
